FAERS Safety Report 10297628 (Version 2)
Quarter: 2014Q3

REPORT INFORMATION
  Report Type: Spontaneous
  Country: US (occurrence: US)
  Receive Date: 20140711
  Receipt Date: 20140825
  Transmission Date: 20150326
  Serious: Yes (Hospitalization)
  Sender: FDA-Public Use
  Company Number: US-PFIZER INC-2014190928

PATIENT
  Age: 36 Year
  Sex: Female
  Weight: 61.22 kg

DRUGS (1)
  1. SUTENT [Suspect]
     Active Substance: SUNITINIB MALATE
     Indication: RENAL CELL CARCINOMA
     Dosage: 50 MG, DAILY CYCLIC (FOR 28 DAYS OFF 14 DAYS)
     Route: 048
     Dates: start: 20130918, end: 20131123

REACTIONS (10)
  - Hypoaesthesia [Unknown]
  - Epistaxis [Unknown]
  - Oral pain [Unknown]
  - Oropharyngeal pain [Unknown]
  - Vomiting [Unknown]
  - Headache [Unknown]
  - Hypothyroidism [Recovered/Resolved]
  - Nausea [Unknown]
  - Diplopia [Unknown]
  - Paraesthesia [Unknown]

NARRATIVE: CASE EVENT DATE: 2013
